FAERS Safety Report 12397153 (Version 1)
Quarter: 2016Q2

REPORT INFORMATION
  Report Type: Spontaneous
  Country: US (occurrence: US)
  Receive Date: 20160524
  Receipt Date: 20160524
  Transmission Date: 20160815
  Serious: Yes (Hospitalization, Other)
  Sender: FDA-Public Use
  Company Number: US-ENDO PHARMACEUTICALS INC.-2016-000936

PATIENT
  Age: 51 Year
  Sex: Male
  Weight: 131.66 kg

DRUGS (1)
  1. DELATESTRYL [Suspect]
     Active Substance: TESTOSTERONE ENANTHATE
     Indication: ANDROGEN REPLACEMENT THERAPY
     Route: 030
     Dates: start: 2009, end: 2011

REACTIONS (3)
  - Prostate cancer [Unknown]
  - Deep vein thrombosis [Unknown]
  - Chest pain [Unknown]

NARRATIVE: CASE EVENT DATE: 20100212
